FAERS Safety Report 7371327-9 (Version None)
Quarter: 2011Q1

REPORT INFORMATION
  Report Type: 
  Country: None (occurrence: None)
  Receive Date: 20110318
  Receipt Date: 20110318
  Transmission Date: 20110831
  Serious: Yes (Hospitalization)
  Sender: FDA-Public Use
  Company Number: None

PATIENT
  Sex: Male
  Weight: 75.2 kg

DRUGS (8)
  1. LISINOPRIL [Concomitant]
  2. CISPLATIN [Suspect]
     Dosage: 187 MG
     Dates: end: 20110224
  3. REMERON [Concomitant]
  4. ATIVAN [Concomitant]
  5. ACTOS [Concomitant]
  6. GLIPIZIDE [Concomitant]
  7. DOCETAXEL [Suspect]
     Dosage: 140.25 MG
     Dates: end: 20110224
  8. VICODIN [Concomitant]

REACTIONS (1)
  - NEUTROPHIL COUNT DECREASED [None]
